FAERS Safety Report 16181297 (Version 1)
Quarter: 2019Q2

REPORT INFORMATION
  Report Type: Spontaneous
  Country: US (occurrence: US)
  Receive Date: 20190410
  Receipt Date: 20190410
  Transmission Date: 20190711
  Serious: Yes (Death)
  Sender: FDA-Public Use
  Company Number: US-MALLINCKRODT-T201902954

PATIENT
  Sex: Female

DRUGS (2)
  1. H.P. ACTHAR [Suspect]
     Active Substance: CORTICOTROPIN
     Indication: DERMATOMYOSITIS
     Dosage: 80 UNITS, 1 ML, TWICE WEEKLY
     Route: 058
     Dates: start: 201612
  2. H.P. ACTHAR [Suspect]
     Active Substance: CORTICOTROPIN
     Indication: POLYMYOSITIS

REACTIONS (1)
  - Death [Fatal]
